FAERS Safety Report 5076293-7 (Version None)
Quarter: 2006Q3

REPORT INFORMATION
  Report Type: 
  Country: None (occurrence: None)
  Receive Date: 20060807
  Receipt Date: 20060727
  Transmission Date: 20061208
  Serious: Yes (Death)
  Sender: FDA-Public Use
  Company Number: 2006-01940

PATIENT
  Age: 56 Year
  Sex: Male

DRUGS (2)
  1. VELCADE [Suspect]
     Indication: MULTIPLE MYELOMA
     Dosage: 1.30 MG/M2, UNK, INTRAVENOUS
     Route: 042
     Dates: start: 20050214, end: 20050508
  2. DEXAMETHASONE [Suspect]
     Indication: MULTIPLE MYELOMA
     Dosage: 20.00 MG, UNK, ORAL
     Route: 048
     Dates: start: 20050510, end: 20050708

REACTIONS (5)
  - DISEASE PROGRESSION [None]
  - HAEMOPTYSIS [None]
  - RENAL FAILURE ACUTE [None]
  - THORACIC VERTEBRAL FRACTURE [None]
  - THROMBOCYTOPENIA [None]
